FAERS Safety Report 5679741-4 (Version None)
Quarter: 2008Q1

REPORT INFORMATION
  Report Type: 
  Country: None (occurrence: None)
  Receive Date: 20080324
  Receipt Date: 20080317
  Transmission Date: 20080703
  Serious: Yes (Other)
  Sender: FDA-Public Use
  Company Number: CHPA2008US04881

PATIENT
  Sex: Male

DRUGS (1)
  1. EX-LAX MILK OF MAGNESIA RASPBERRY (NCH)(MAGNESIUM HYDROXIDE, SIMETHICO [Suspect]
     Indication: CONSTIPATION
     Dosage: HALF THE BOTTLE, ORAL
     Route: 048
     Dates: start: 20080317

REACTIONS (5)
  - ABDOMINAL PAIN [None]
  - FREQUENT BOWEL MOVEMENTS [None]
  - OVERDOSE [None]
  - RECTAL HAEMORRHAGE [None]
  - WRONG TECHNIQUE IN DRUG USAGE PROCESS [None]
